FAERS Safety Report 6342558-1 (Version None)
Quarter: 2009Q3

REPORT INFORMATION
  Report Type: 
  Country: None (occurrence: None)
  Receive Date: 20090908
  Receipt Date: 20051114
  Transmission Date: 20100115
  Serious: No
  Sender: FDA-Public Use
  Company Number: JP-ROCHE-425978

PATIENT
  Sex: Male
  Weight: 2.9 kg

DRUGS (2)
  1. OSELTAMIVIR [Suspect]
     Dates: start: 20050315, end: 20050317
  2. GENERIC UNKNOWN [Concomitant]
     Indication: COUGH
     Dosage: SHOUSEI RYUUTO (HERBAL MEDICINES).  DOSAGE REPORTED AS: 7.5GRAMS.
     Dates: start: 20050315, end: 20050317

REACTIONS (4)
  - CAESAREAN SECTION [None]
  - MATERNAL DRUGS AFFECTING FOETUS [None]
  - NORMAL NEWBORN [None]
  - PREMATURE BABY [None]
